FAERS Safety Report 19217379 (Version 1)
Quarter: 2021Q2

REPORT INFORMATION
  Report Type: Spontaneous
  Country: ES (occurrence: ES)
  Receive Date: 20210505
  Receipt Date: 20210505
  Transmission Date: 20210717
  Serious: Yes (Hospitalization)
  Sender: FDA-Public Use
  Company Number: ES-TEVA-2021-ES-1906792

PATIENT
  Age: 87 Year
  Sex: Male

DRUGS (2)
  1. AMIODARONA [Suspect]
     Active Substance: AMIODARONE
     Indication: ATRIAL FLUTTER
     Dosage: 200 MILLIGRAM DAILY; 1?0?0 FROM MONDAY TO FRIDAY
     Route: 048
     Dates: start: 20201216, end: 20210119
  2. BISOPROLOL [Suspect]
     Active Substance: BISOPROLOL
     Indication: ATRIAL FLUTTER
     Dosage: 1 DOSAGE FORMS DAILY; 1?0?0
     Route: 048
     Dates: start: 20201216

REACTIONS (1)
  - Atrioventricular block complete [Recovered/Resolved]

NARRATIVE: CASE EVENT DATE: 20210119
